FAERS Safety Report 17458740 (Version 1)
Quarter: 2020Q1

REPORT INFORMATION
  Report Type: Spontaneous
  Country: US (occurrence: US)
  Receive Date: 20200225
  Receipt Date: 20200225
  Transmission Date: 20200409
  Serious: No
  Sender: FDA-Public Use
  Company Number: US-AMGEN-USASP2020029439

PATIENT
  Age: 53 Year
  Sex: Female

DRUGS (3)
  1. CINACALCET HCL [Suspect]
     Active Substance: CINACALCET HYDROCHLORIDE
     Indication: END STAGE RENAL DISEASE
     Dosage: UNK
     Route: 065
  2. SEVELAMER [Concomitant]
     Active Substance: SEVELAMER
  3. BLOOD [Concomitant]
     Active Substance: WHOLE BLOOD

REACTIONS (1)
  - Off label use [Unknown]
